FAERS Safety Report 22631642 (Version 1)
Quarter: 2023Q2

REPORT INFORMATION
  Report Type: Report from Study
  Country: US (occurrence: US)
  Receive Date: 20230623
  Receipt Date: 20230623
  Transmission Date: 20230722
  Serious: No
  Sender: FDA-Public Use
  Company Number: US-002147023-NVSC2023US135467

PATIENT
  Sex: Female

DRUGS (1)
  1. TERBINAFINE [Suspect]
     Active Substance: TERBINAFINE
     Indication: Pain
     Dosage: UNK (X 2 MONTHS)
     Route: 065

REACTIONS (2)
  - Nail psoriasis [Unknown]
  - Drug ineffective [Unknown]
